FAERS Safety Report 9004777 (Version 1)
Quarter: 2013Q1

REPORT INFORMATION
  Report Type: Spontaneous
  Country: US (occurrence: US)
  Receive Date: 20130109
  Receipt Date: 20130109
  Transmission Date: 20140127
  Serious: Yes (Other)
  Sender: FDA-Public Use
  Company Number: US-PFIZER INC-2013008771

PATIENT
  Age: 71 Year
  Sex: Female
  Weight: 64.4 kg

DRUGS (3)
  1. NEURONTIN [Suspect]
     Indication: NEURALGIA
     Dosage: 1600 MG, 4X/DAY
  2. LYRICA [Suspect]
     Indication: BACK PAIN
     Dosage: UNK
     Route: 048
     Dates: start: 2008, end: 2011
  3. VITAMIN D [Concomitant]
     Dosage: UNK

REACTIONS (8)
  - Gait disturbance [Unknown]
  - Sensory loss [Unknown]
  - Pain [Unknown]
  - Back disorder [Unknown]
  - Spinal pain [Unknown]
  - Burning sensation [Unknown]
  - Drug ineffective [Unknown]
  - Incorrect dose administered [Unknown]
